FAERS Safety Report 4596348-0 (Version None)
Quarter: 2005Q1

REPORT INFORMATION
  Report Type: 
  Country: None (occurrence: None)
  Receive Date: 20050228
  Receipt Date: 20050218
  Transmission Date: 20050727
  Serious: Yes (Hospitalization)
  Sender: FDA-Public Use
  Company Number: 2005-02-1090

PATIENT
  Age: 91 Year
  Sex: Female

DRUGS (2)
  1. CELESTONE [Suspect]
     Dosage: 2 MG TID ORAL
     Route: 048
     Dates: start: 20050215
  2. PREVISCAN [Suspect]

REACTIONS (1)
  - GASTROINTESTINAL HAEMORRHAGE [None]
